FAERS Safety Report 4736686-1 (Version None)
Quarter: 2005Q3

REPORT INFORMATION
  Report Type: 
  Country: None (occurrence: None)
  Receive Date: 20050803
  Receipt Date: 20050719
  Transmission Date: 20060218
  Serious: Yes (Other)
  Sender: FDA-Public Use
  Company Number: 2005PV000429

PATIENT
  Age: 51 Year
  Sex: Female
  Weight: 120.2032 kg

DRUGS (10)
  1. BYETTA [Suspect]
     Indication: DIABETES MELLITUS NON-INSULIN-DEPENDENT
     Dosage: 5 UG; BID; SC
     Route: 058
     Dates: start: 20050706
  2. GLUCOPHAGE [Concomitant]
  3. EFFEXOR [Concomitant]
  4. INNOPRAN XL [Concomitant]
  5. ZYRTEC [Concomitant]
  6. SYNTHROID [Concomitant]
  7. CYTOMEL [Concomitant]
  8. ESTRADIOL [Concomitant]
  9. ZOMIG [Concomitant]
  10. GLUCOPHAGE [Concomitant]

REACTIONS (7)
  - DISORIENTATION [None]
  - HALLUCINATION [None]
  - HYPOGLYCAEMIA [None]
  - LOSS OF CONSCIOUSNESS [None]
  - ORAL INTAKE REDUCED [None]
  - PALPITATIONS [None]
  - WEIGHT INCREASED [None]
